FAERS Safety Report 7971597-X (Version None)
Quarter: 2011Q4

REPORT INFORMATION
  Report Type: 
  Country: None (occurrence: None)
  Receive Date: 20111209
  Receipt Date: 20111209
  Transmission Date: 20120403
  Serious: No
  Sender: FDA-Public Use
  Company Number: None

PATIENT
  Age: 55 Year
  Sex: Female
  Weight: 83.6 kg

DRUGS (1)
  1. SIMVASTATIN [Suspect]
     Dosage: 10 MG HS PO
     Route: 048
     Dates: start: 20110715, end: 20110729

REACTIONS (1)
  - MYALGIA [None]
